FAERS Safety Report 6749127-X (Version None)
Quarter: 2010Q2

REPORT INFORMATION
  Report Type: 
  Country: None (occurrence: None)
  Receive Date: 20100601
  Receipt Date: 20080609
  Transmission Date: 20101027
  Serious: Yes (Other)
  Sender: FDA-Public Use
  Company Number: TR-SANOFI-AVENTIS-A01200806423

PATIENT
  Age: 29 Year
  Sex: Female
  Weight: 85 kg

DRUGS (1)
  1. PETHIDINE HYDROCHLORIDE [Suspect]
     Route: 041

REACTIONS (2)
  - DISORIENTATION [None]
  - RETROGRADE AMNESIA [None]
